FAERS Safety Report 14177012 (Version 1)
Quarter: 2017Q4

REPORT INFORMATION
  Report Type: Spontaneous
  Country: US (occurrence: US)
  Receive Date: 20171110
  Receipt Date: 20171110
  Transmission Date: 20180321
  Serious: Yes (Life-Threatening, Disabling)
  Sender: FDA-Public Use
  Company Number: None

PATIENT
  Age: 57 Year
  Sex: Female

DRUGS (1)
  1. DEPO-MEDROL [Suspect]
     Active Substance: METHYLPREDNISOLONE ACETATE
     Indication: RADICULOPATHY
     Dosage: ?          OTHER FREQUENCY:ONCE;?
     Route: 008
     Dates: start: 20161216, end: 20161216

REACTIONS (4)
  - Radiculopathy [None]
  - Back pain [None]
  - Temperature intolerance [None]
  - Neuropathy peripheral [None]

NARRATIVE: CASE EVENT DATE: 20161216
